FAERS Safety Report 11915765 (Version 1)
Quarter: 2016Q1

REPORT INFORMATION
  Report Type: Spontaneous
  Country: US (occurrence: US)
  Receive Date: 20160114
  Receipt Date: 20160114
  Transmission Date: 20160526
  Serious: No
  Sender: FDA-Public Use
  Company Number: US-BAYER-2016-007704

PATIENT
  Age: 77 Year
  Sex: Male
  Weight: 92.97 kg

DRUGS (9)
  1. MIRALAX [Suspect]
     Active Substance: POLYETHYLENE GLYCOL 3350
     Indication: CONSTIPATION
     Dosage: 1 DF, QD
     Route: 048
     Dates: start: 20160112
  2. VICODIN [Concomitant]
     Active Substance: ACETAMINOPHEN\HYDROCODONE BITARTRATE
  3. COLACE [Concomitant]
     Active Substance: DOCUSATE SODIUM
  4. TYLENOL [CHLORPHENAM MAL,DEXTROMET HBR,PARACET,PSEUDOEPH HCL] [Concomitant]
  5. FLOMAX [Concomitant]
     Active Substance: TAMSULOSIN HYDROCHLORIDE
  6. TYLENOL PM [Concomitant]
     Active Substance: ACETAMINOPHEN\DIPHENHYDRAMINE
  7. DULCOLAX (DOCUSATE SODIUM) [Concomitant]
     Active Substance: DOCUSATE SODIUM
  8. AMLODIPINE [Concomitant]
     Active Substance: AMLODIPINE BESYLATE
  9. LISINOPRIL. [Concomitant]
     Active Substance: LISINOPRIL

REACTIONS (2)
  - Product use issue [None]
  - Product use issue [None]

NARRATIVE: CASE EVENT DATE: 20160112
